FAERS Safety Report 5199735-5 (Version None)
Quarter: 2007Q1

REPORT INFORMATION
  Report Type: 
  Country: None (occurrence: None)
  Receive Date: 20070103
  Receipt Date: 20070103
  Transmission Date: 20070707
  Serious: Yes (Death)
  Sender: FDA-Public Use
  Company Number: None

PATIENT
  Age: 40 Year
  Sex: Female
  Weight: 99.7913 kg

DRUGS (2)
  1. SIROLIMUS-ELUTING STENTS       OTW  CYPHER [Suspect]
     Indication: CORONARY ARTERY DISEASE
     Dates: start: 20050412, end: 20060914
  2. SIROLIMUS-ELUTING STENTS       OTW  CYPHER [Suspect]
     Indication: CORONARY ARTERY DISEASE
     Dates: start: 20050414, end: 20060914

REACTIONS (4)
  - CARDIAC ARREST [None]
  - CHEST PAIN [None]
  - CONVULSION [None]
  - MALIGNANT MELANOMA [None]
